FAERS Safety Report 18762839 (Version 1)
Quarter: 2021Q1

REPORT INFORMATION
  Report Type: Spontaneous
  Country: US (occurrence: US)
  Receive Date: 20210120
  Receipt Date: 20210120
  Transmission Date: 20210419
  Serious: Yes (Other)
  Sender: FDA-Public Use
  Company Number: None

PATIENT
  Sex: Female

DRUGS (2)
  1. DORZOLAMIDE 2% [Suspect]
     Active Substance: DORZOLAMIDE
  2. COMBIGAN [Suspect]
     Active Substance: BRIMONIDINE TARTRATE\TIMOLOL MALEATE

REACTIONS (2)
  - Hypersensitivity [None]
  - Intraocular pressure test abnormal [None]
